FAERS Safety Report 11845863 (Version 1)
Quarter: 2015Q4

REPORT INFORMATION
  Report Type: Spontaneous
  Country: US (occurrence: US)
  Receive Date: 20151217
  Receipt Date: 20151217
  Transmission Date: 20160305
  Serious: No
  Sender: FDA-Public Use
  Company Number: US-BAYER-2015-490409

PATIENT
  Age: 83 Year
  Sex: Female
  Weight: 92.52 kg

DRUGS (3)
  1. METOPROLOL [Concomitant]
     Active Substance: METOPROLOL
  2. POTASSIUM [Concomitant]
     Active Substance: POTASSIUM
  3. MIRALAX [Suspect]
     Active Substance: POLYETHYLENE GLYCOL 3350
     Indication: CONSTIPATION
     Dosage: 1 DF, QD
     Route: 048

REACTIONS (3)
  - Drug effect incomplete [None]
  - Product use issue [None]
  - Abdominal pain upper [Recovered/Resolved]
